FAERS Safety Report 21395666 (Version 1)
Quarter: 2022Q3

REPORT INFORMATION
  Report Type: Report from Study
  Country: US (occurrence: US)
  Receive Date: 20220930
  Receipt Date: 20220930
  Transmission Date: 20221027
  Serious: No
  Sender: FDA-Public Use
  Company Number: US-ABBVIE-22K-163-4489796-00

PATIENT
  Sex: Male
  Weight: 108.86 kg

DRUGS (4)
  1. IMBRUVICA [Suspect]
     Active Substance: IBRUTINIB
     Indication: Chronic lymphocytic leukaemia
     Route: 048
     Dates: start: 2020
  2. PFIZER-BIONTECH COVID-19 VACCINE [Concomitant]
     Active Substance: TOZINAMERAN
     Indication: COVID-19 immunisation
     Dosage: TIME INTERVAL: 1 TOTAL: ONE IN ONCE
     Route: 030
  3. PFIZER-BIONTECH COVID-19 VACCINE [Concomitant]
     Active Substance: TOZINAMERAN
     Indication: COVID-19 immunisation
     Dosage: TIME INTERVAL: 1 TOTAL: BOOSTER DOSE, ONE IN ONCE
     Route: 030
  4. Covid19 vaccine [Concomitant]
     Indication: COVID-19 immunisation
     Dosage: 4 SHOTS OF UNSPECIFIED COVID19 VACCINE
     Route: 030

REACTIONS (5)
  - Arthralgia [Recovering/Resolving]
  - Contusion [Not Recovered/Not Resolved]
  - Intentional product misuse [Recovering/Resolving]
  - Muscle tightness [Recovering/Resolving]
  - Arthropathy [Recovering/Resolving]

NARRATIVE: CASE EVENT DATE: 20210101
